FAERS Safety Report 6366265-4 (Version None)
Quarter: 2009Q3

REPORT INFORMATION
  Report Type: 
  Country: None (occurrence: None)
  Receive Date: 20090921
  Receipt Date: 20090915
  Transmission Date: 20100115
  Serious: No
  Sender: FDA-Public Use
  Company Number: US-ALLERGAN-0912394US

PATIENT
  Age: 44 Year
  Sex: Female

DRUGS (4)
  1. PRED FORTE [Suspect]
     Indication: IRIDOCYCLITIS
     Dosage: UNK
     Route: 047
  2. PRED FORTE [Suspect]
     Indication: UVEITIS
  3. REBIF [Concomitant]
     Indication: MULTIPLE SCLEROSIS
     Dosage: 44 A?G, 3 TIMES PER WEEK
     Route: 058
     Dates: start: 20070620
  4. IBUPROFEN [Concomitant]
     Indication: PREMEDICATION
     Dosage: UNK

REACTIONS (1)
  - NO ADVERSE EVENT [None]
